FAERS Safety Report 21811758 (Version 10)
Quarter: 2025Q1

REPORT INFORMATION
  Report Type: Spontaneous
  Country: US (occurrence: US)
  Receive Date: 20230103
  Receipt Date: 20250325
  Transmission Date: 20250409
  Serious: Yes (Other)
  Sender: PFIZER
  Company Number: US-PFIZER INC-PV202200011623

PATIENT
  Age: 72 Year
  Sex: Female

DRUGS (3)
  1. BOSULIF [Suspect]
     Active Substance: BOSUTINIB MONOHYDRATE
     Indication: Chronic myeloid leukaemia
  2. BOSULIF [Suspect]
     Active Substance: BOSUTINIB MONOHYDRATE
     Dosage: 100 MG, 3X/DAY (WITH FOOD)
     Route: 048
  3. BOSULIF [Suspect]
     Active Substance: BOSUTINIB MONOHYDRATE
     Dosage: 300 MG, 1X/DAY (TAKE 3 TABLETS ONCE A DAY AT SAME TIME W/FOOD)/100MG 3 TABLETS ONCE A DAY
     Route: 048

REACTIONS (7)
  - Deafness [Not Recovered/Not Resolved]
  - Sciatica [Unknown]
  - Alopecia [Not Recovered/Not Resolved]
  - Blood alkaline phosphatase increased [Unknown]
  - Amylase increased [Unknown]
  - Decreased appetite [Unknown]
  - Off label use [Unknown]
